FAERS Safety Report 7402124-3 (Version None)
Quarter: 2011Q1

REPORT INFORMATION
  Report Type: 
  Country: None (occurrence: None)
  Receive Date: 20110330
  Receipt Date: 20110314
  Transmission Date: 20110831
  Serious: Yes (Other)
  Sender: FDA-Public Use
  Company Number: TUK2011A00020

PATIENT
  Age: 55 Year
  Sex: Female

DRUGS (9)
  1. ACTOS [Suspect]
     Indication: DIABETES MELLITUS
     Dosage: ORAL
     Route: 048
     Dates: start: 20100215, end: 20100501
  2. NOVORAPID [Concomitant]
  3. OMEPRAZOLE [Concomitant]
  4. ATENOLOL [Concomitant]
  5. AMITRIPTYLINE (AMITRIPTYLINE) [Concomitant]
  6. GLARGINE INSULIN (INSULIN GLARGINE) [Concomitant]
  7. ASPIRIN [Concomitant]
  8. CANDESARTAN CILEXETIL [Concomitant]
  9. ROSUVASTATIN [Concomitant]

REACTIONS (5)
  - PNEUMATURIA [None]
  - RENAL CYST [None]
  - ESCHERICHIA URINARY TRACT INFECTION [None]
  - BLOOD INSULIN ABNORMAL [None]
  - HAEMATURIA [None]
